FAERS Safety Report 7967045-6 (Version None)
Quarter: 2011Q4

REPORT INFORMATION
  Report Type: 
  Country: None (occurrence: None)
  Receive Date: 20111209
  Receipt Date: 20111206
  Transmission Date: 20120403
  Serious: No
  Sender: FDA-Public Use
  Company Number: US-PFIZER INC-2011297952

PATIENT
  Sex: Female

DRUGS (4)
  1. DEPO-PROVERA [Suspect]
     Indication: CONTRACEPTION
     Dosage: 150 MG, UNK
  2. FLOVENT [Concomitant]
     Dosage: UNK,AS NEEDED
  3. DEPO-PROVERA [Suspect]
     Indication: MENSTRUAL DISORDER
  4. IMITREX [Concomitant]
     Dosage: UNK,AS NEEDED

REACTIONS (2)
  - OEDEMA PERIPHERAL [None]
  - INJECTION SITE PAIN [None]
